FAERS Safety Report 9513421 (Version 1)
Quarter: 2013Q3

REPORT INFORMATION
  Report Type: Not Available
  Country: US (occurrence: US)
  Receive Date: 20130910
  Receipt Date: 20130910
  Transmission Date: 20140515
  Serious: No
  Sender: FDA-Public Use
  Company Number: US-TARO-2012P1057498

PATIENT
  Age: 85 Year
  Sex: Male
  Weight: 97.52 kg

DRUGS (22)
  1. WARFARIN SODIUM TABLETS USP 2MG [Suspect]
     Indication: TRANSIENT ISCHAEMIC ATTACK
     Dates: start: 1999
  2. WARFARIN SODIUM TABLETS USP 2MG [Suspect]
     Indication: TRANSIENT ISCHAEMIC ATTACK
     Route: 048
     Dates: start: 2003
  3. WARFARIN SODIUM TABLETS USP 2MG [Suspect]
     Indication: TRANSIENT ISCHAEMIC ATTACK
     Route: 048
     Dates: start: 2003
  4. WARFARIN SODIUM TABLETS USP 2MG [Suspect]
     Indication: TRANSIENT ISCHAEMIC ATTACK
     Route: 048
     Dates: start: 20120906
  5. WARFARIN SODIUM TABLETS USP 5MG [Suspect]
     Dates: start: 1999
  6. WARFARIN SODIUM TABLETS USP 5MG [Suspect]
     Dates: start: 2003
  7. WARFARIN SODIUM TABLETS USP 5MG [Suspect]
     Dates: start: 2003
  8. WARFARIN SODIUM TABLETS USP 5MG [Suspect]
     Dates: start: 20120906
  9. ALLOPURINOL [Concomitant]
  10. CARDIVEROL [Concomitant]
  11. DIGOXIN TABLETS USP 0.25MG [Concomitant]
  12. GLIPIZIDE [Concomitant]
  13. HCTZ [Concomitant]
  14. LOSARTAN [Concomitant]
  15. METFORMIN [Concomitant]
  16. SYMBICORT [Concomitant]
  17. ACETAMINOPHEN 500 MG [Concomitant]
  18. ASPIRIN [Concomitant]
  19. BIOTIN 5000 MCG [Concomitant]
  20. FISH OIL [Concomitant]
  21. VITALIZE [Concomitant]
  22. ZYRTEC 10MG [Concomitant]

REACTIONS (1)
  - International normalised ratio decreased [Unknown]
